FAERS Safety Report 6653507-0 (Version None)
Quarter: 2010Q1

REPORT INFORMATION
  Report Type: 
  Country: None (occurrence: None)
  Receive Date: 20100326
  Receipt Date: 20100309
  Transmission Date: 20100710
  Serious: Yes (Hospitalization)
  Sender: FDA-Public Use
  Company Number: GB-TEVA-228520ISR

PATIENT
  Sex: Male

DRUGS (17)
  1. PREDNISOLONE [Suspect]
     Indication: PROSTATE CANCER
     Route: 048
     Dates: start: 20081218, end: 20090204
  2. ABIRATERONE  ACETATEB OR PLACEBO [Suspect]
     Indication: PROSTATE CANCER
     Route: 048
     Dates: start: 20081218, end: 20090129
  3. LANSOPRAZOLE [Concomitant]
     Indication: PROPHYLAXIS
     Route: 048
     Dates: start: 20090129
  4. LACTULOSE [Concomitant]
     Indication: CONSTIPATION
     Route: 048
     Dates: start: 20090129
  5. GOSERELIN [Concomitant]
     Indication: PROSTATE CANCER
     Route: 042
     Dates: start: 20081218
  6. DEXAMETHASONE [Concomitant]
     Indication: CANCER PAIN
     Dates: start: 20081218
  7. DEXAMETHASONE [Concomitant]
     Route: 048
     Dates: start: 20090204, end: 20090201
  8. LEVOMEPROMAZINE [Concomitant]
     Indication: PROPHYLAXIS OF NAUSEA AND VOMITING
     Route: 048
     Dates: start: 20081201
  9. LEVOMEPROMAZINE [Concomitant]
  10. ACETYLSALICYLIC ACID [Concomitant]
     Indication: PROPHYLAXIS
     Route: 048
  11. FERROUS FUMARATE [Concomitant]
     Indication: PROPHYLAXIS
     Route: 048
     Dates: start: 20080313
  12. CALCIUM CARBONATE [Concomitant]
     Indication: SUPPLEMENTATION THERAPY
     Route: 048
     Dates: start: 20070601
  13. ZOLEDRONIC ACID [Concomitant]
     Indication: CANCER PAIN
     Route: 042
     Dates: start: 20070605
  14. ENOXAPARIN SODIUM [Concomitant]
     Indication: ANTICOAGULANT THERAPY
     Route: 058
     Dates: start: 20080801
  15. BUPRENORPHINE [Concomitant]
     Route: 062
     Dates: start: 20090129
  16. PANADEINE CO [Concomitant]
     Indication: CANCER PAIN
     Route: 048
     Dates: start: 20081201
  17. POTASSIUM CHLORIDE [Concomitant]
     Indication: PROPHYLAXIS
     Route: 048
     Dates: start: 20081208, end: 20081211

REACTIONS (3)
  - HEPATITIS [None]
  - INFECTION [None]
  - RECTAL HAEMORRHAGE [None]
